FAERS Safety Report 5817687-9 (Version None)
Quarter: 2008Q3

REPORT INFORMATION
  Report Type: 
  Country: None (occurrence: None)
  Receive Date: 20080716
  Receipt Date: 20080626
  Transmission Date: 20090109
  Serious: Yes (Hospitalization)
  Sender: FDA-Public Use
  Company Number: ENT-2008-0102

PATIENT
  Age: 76 Year
  Sex: Female

DRUGS (3)
  1. COMTAN [Suspect]
     Indication: PARKINSON'S DISEASE
     Dosage: 100 MG DAILY,  ORAL
     Route: 048
  2. LEVODOPA [Concomitant]
  3. DOPAMINE HCL [Concomitant]

REACTIONS (2)
  - FRACTURE [None]
  - HALLUCINATION [None]
